FAERS Safety Report 12344725 (Version 3)
Quarter: 2020Q1

REPORT INFORMATION
  Report Type: Spontaneous
  Country: US (occurrence: US)
  Receive Date: 20160507
  Receipt Date: 20200305
  Transmission Date: 20200409
  Serious: Yes (Hospitalization)
  Sender: FDA-Public Use
  Company Number: US-JNJFOC-20160410835

PATIENT
  Age: 86 Year
  Sex: Female

DRUGS (2)
  1. XARELTO [Suspect]
     Active Substance: RIVAROXABAN
     Indication: CEREBROVASCULAR ACCIDENT PROPHYLAXIS
     Route: 048
     Dates: start: 20140220, end: 20140701
  2. XARELTO [Suspect]
     Active Substance: RIVAROXABAN
     Indication: ANTICOAGULANT THERAPY
     Route: 048
     Dates: start: 201208

REACTIONS (8)
  - Fall [Unknown]
  - Contusion [Unknown]
  - Coagulopathy [Unknown]
  - Off label use [Unknown]
  - Cough [Unknown]
  - Prescribed underdose [Unknown]
  - Skin abrasion [Unknown]
  - Haematoma [Unknown]

NARRATIVE: CASE EVENT DATE: 2014
